FAERS Safety Report 11661321 (Version 1)
Quarter: 2015Q4

REPORT INFORMATION
  Report Type: Spontaneous
  Country: US (occurrence: US)
  Receive Date: 20151026
  Receipt Date: 20151026
  Transmission Date: 20160304
  Serious: Yes (Other)
  Sender: FDA-Public Use
  Company Number: US-AKORN PHARMACEUTICALS-2015AKN00586

PATIENT
  Age: 67 Year
  Sex: Male

DRUGS (4)
  1. COMBINATION RETROVIRAL THERAPY [Concomitant]
     Indication: HIV INFECTION
     Dosage: UNK
     Dates: start: 199707
  2. RITONAVIR. [Suspect]
     Active Substance: RITONAVIR
     Indication: HIV INFECTION
  3. TRIAMCINOLONE ACETONIDE. [Suspect]
     Active Substance: TRIAMCINOLONE ACETONIDE
     Dosage: 460 MG, OVER 4.5 YEARS
     Route: 014
     Dates: start: 2010
  4. METHYLPREDNISOLONE. [Suspect]
     Active Substance: METHYLPREDNISOLONE
     Dosage: 400 MG, OVER 4.5 YEARS
     Route: 014
     Dates: start: 2010

REACTIONS (3)
  - Myopathy [Recovered/Resolved]
  - Drug interaction [Recovered/Resolved]
  - Adrenal insufficiency [Recovered/Resolved]

NARRATIVE: CASE EVENT DATE: 20140922
